FAERS Safety Report 7254660-0 (Version None)
Quarter: 2011Q1

REPORT INFORMATION
  Report Type: 
  Country: None (occurrence: None)
  Receive Date: 20110129
  Receipt Date: 20100406
  Transmission Date: 20110831
  Serious: No
  Sender: FDA-Public Use
  Company Number: US-ABBOTT-10P-163-0636671-00

PATIENT
  Sex: Male

DRUGS (4)
  1. MARIJUANA [Concomitant]
     Indication: DEPRESSION
  2. HUMIRA [Suspect]
     Indication: CROHN'S DISEASE
     Dates: start: 20091001, end: 20100320
  3. MERCAPTOPURINE [Concomitant]
     Indication: CROHN'S DISEASE
     Dosage: TAKES ONCE IN AWHILE
  4. MARIJUANA [Concomitant]
     Indication: ANXIETY

REACTIONS (1)
  - HAEMATOCHEZIA [None]
